FAERS Safety Report 15517757 (Version 2)
Quarter: 2018Q4

REPORT INFORMATION
  Report Type: Spontaneous
  Country: US (occurrence: US)
  Receive Date: 20181017
  Receipt Date: 20181128
  Transmission Date: 20190205
  Serious: No
  Sender: FDA-Public Use
  Company Number: US-PFIZER INC-2018416570

PATIENT
  Sex: Female

DRUGS (1)
  1. LYRICA [Suspect]
     Active Substance: PREGABALIN
     Indication: POST HERPETIC NEURALGIA
     Dosage: 0.5 DF, UNK (TOOK HALF)

REACTIONS (4)
  - Intentional product misuse [Unknown]
  - Headache [Unknown]
  - Gait disturbance [Unknown]
  - Mobility decreased [Unknown]
